FAERS Safety Report 9788895 (Version 3)
Quarter: 2014Q1

REPORT INFORMATION
  Report Type: Spontaneous
  Country: FR (occurrence: FR)
  Receive Date: 20131230
  Receipt Date: 20140313
  Transmission Date: 20141002
  Serious: Yes (Hospitalization, Disabling, Other)
  Sender: FDA-Public Use
  Company Number: FR-GLAXOSMITHKLINE-B0955518A

PATIENT
  Age: 67 Year
  Sex: Female
  Weight: 86 kg

DRUGS (11)
  1. ARIXTRA [Suspect]
     Indication: PULMONARY EMBOLISM
     Dosage: 7.5MG PER DAY
     Route: 058
     Dates: start: 201310, end: 20131123
  2. LOVENOX [Concomitant]
     Indication: PULMONARY EMBOLISM
     Route: 065
     Dates: start: 2013, end: 2013
  3. INNOHEP [Concomitant]
     Indication: PULMONARY EMBOLISM
     Route: 065
     Dates: start: 2013, end: 2013
  4. COUMADINE [Concomitant]
     Indication: PRODUCT USED FOR UNKNOWN INDICATION
     Route: 065
     Dates: start: 2013, end: 2013
  5. ANTIBIOTIC UNSPECIFIED [Concomitant]
     Indication: PRODUCT USED FOR UNKNOWN INDICATION
     Route: 065
     Dates: start: 2013
  6. EFFEXOR [Concomitant]
     Indication: DEPRESSION
     Dosage: 150MG PER DAY
     Route: 048
     Dates: start: 201310
  7. APROVEL [Concomitant]
     Indication: HYPERTENSION
     Dosage: 150MG PER DAY
     Route: 048
     Dates: start: 201310
  8. VALIUM [Concomitant]
     Indication: PSYCHOTIC DISORDER
     Dosage: .5UNIT TWICE PER DAY
     Route: 048
     Dates: start: 201310
  9. IMOVANE [Concomitant]
     Indication: INSOMNIA
     Dosage: 7.5MG PER DAY
     Route: 048
     Dates: start: 201310
  10. INEXIUM [Concomitant]
     Indication: ILL-DEFINED DISORDER
     Dosage: 40MG PER DAY
     Route: 048
     Dates: start: 201310
  11. IXPRIM [Concomitant]
     Indication: PAIN
     Route: 048
     Dates: start: 201310

REACTIONS (5)
  - Haemorrhage [Recovering/Resolving]
  - Haematoma [Recovering/Resolving]
  - Anaemia [Recovering/Resolving]
  - Renal failure acute [Recovered/Resolved]
  - Fall [Unknown]
